FAERS Safety Report 12093349 (Version 1)
Quarter: 2016Q1

REPORT INFORMATION
  Report Type: Report from Study
  Country: GB (occurrence: GB)
  Receive Date: 20160219
  Receipt Date: 20160219
  Transmission Date: 20160526
  Serious: Yes (Hospitalization)
  Sender: FDA-Public Use
  Company Number: GB-SA-2016SA025459

PATIENT
  Age: 44 Year
  Sex: Female
  Weight: 86.4 kg

DRUGS (19)
  1. LANSOPRAZOLE. [Concomitant]
     Active Substance: LANSOPRAZOLE
     Route: 048
     Dates: start: 201308
  2. MORPHINE SULFATE. [Concomitant]
     Active Substance: MORPHINE SULFATE
     Dosage: DOSE: 5-10MG
     Route: 048
     Dates: start: 201308
  3. CHLORPHENIRAMINE. [Concomitant]
     Active Substance: CHLORPHENIRAMINE
  4. DEXAMETHASONE. [Concomitant]
     Active Substance: DEXAMETHASONE
     Route: 048
     Dates: start: 20160121
  5. CYCLIZINE [Concomitant]
     Active Substance: CYCLIZINE
     Dosage: ROUTE: PO/IV/IM/SC
     Dates: start: 20130111
  6. DOMPERIDONE [Concomitant]
     Active Substance: DOMPERIDONE
     Route: 048
     Dates: start: 201308
  7. SENNA [Concomitant]
     Active Substance: SENNA LEAF\SENNOSIDES\SENNOSIDES A AND B
     Route: 048
     Dates: start: 201308
  8. RANITIDINE [Concomitant]
     Active Substance: RANITIDINE\RANITIDINE HYDROCHLORIDE
  9. CABAZITAXEL [Suspect]
     Active Substance: CABAZITAXEL
     Indication: BREAST CANCER METASTATIC
     Route: 042
     Dates: start: 20151209, end: 20151209
  10. FUROSEMIDE. [Concomitant]
     Active Substance: FUROSEMIDE
     Route: 048
     Dates: start: 20160104
  11. DOCUSATE [Concomitant]
     Active Substance: DOCUSATE
     Route: 048
     Dates: start: 20151207
  12. CALCIUM CARBONATE/COLECALCIFEROL [Concomitant]
     Route: 048
     Dates: start: 201308
  13. DEXAMETHASONE. [Concomitant]
     Active Substance: DEXAMETHASONE
     Route: 048
     Dates: start: 20160107, end: 20160121
  14. NYSTATIN. [Concomitant]
     Active Substance: NYSTATIN
     Dosage: DOSE:100000 UNIT(S)
     Route: 048
     Dates: start: 20160104, end: 20160111
  15. HALOPERIDOL. [Concomitant]
     Active Substance: HALOPERIDOL
     Route: 058
     Dates: start: 20160111
  16. NEULASTA [Suspect]
     Active Substance: PEGFILGRASTIM
     Route: 058
  17. MORPHINE SULFATE. [Concomitant]
     Active Substance: MORPHINE SULFATE
     Route: 048
     Dates: start: 201308
  18. CHLORHEXIDINE [Concomitant]
     Active Substance: CHLORHEXIDINE
     Route: 061
     Dates: start: 20160104
  19. BECONASE AQ [Concomitant]
     Active Substance: BECLOMETHASONE DIPROPIONATE MONOHYDRATE
     Dosage: FORM: NASAL SPRAY?DOSE: 50MG/SPRAY
     Route: 045
     Dates: start: 20160105

REACTIONS (1)
  - Condition aggravated [Not Recovered/Not Resolved]

NARRATIVE: CASE EVENT DATE: 20160120
